FAERS Safety Report 9773530 (Version 2)
Quarter: 2014Q1

REPORT INFORMATION
  Report Type: Spontaneous
  Country: US (occurrence: US)
  Receive Date: 20131219
  Receipt Date: 20140207
  Transmission Date: 20141002
  Serious: Yes (Other)
  Sender: FDA-Public Use
  Company Number: ALCN2013US006192

PATIENT
  Sex: Male

DRUGS (4)
  1. TRAVATAN Z [Suspect]
  2. DUREZOL [Suspect]
  3. ALPHAGAN [Concomitant]
  4. COSOPT [Concomitant]

REACTIONS (1)
  - Corneal perforation [Unknown]
